FAERS Safety Report 17639986 (Version 1)
Quarter: 2020Q2

REPORT INFORMATION
  Report Type: Not Available
  Country: US (occurrence: US)
  Receive Date: 20200407
  Receipt Date: 20200407
  Transmission Date: 20200713
  Serious: No
  Sender: FDA-Public Use
  Company Number: US-NEUROCRINE BIOSCIENCES INC.-2020NBI01109

PATIENT
  Sex: Male

DRUGS (1)
  1. INGREZZA [Suspect]
     Active Substance: VALBENAZINE
     Indication: TARDIVE DYSKINESIA
     Route: 048

REACTIONS (7)
  - Feeling abnormal [Unknown]
  - Micturition urgency [Unknown]
  - Cold sweat [Unknown]
  - Sleep talking [Unknown]
  - Agitation [Unknown]
  - Feeling hot [Unknown]
  - Confusional state [Unknown]
